FAERS Safety Report 5420686-2 (Version None)
Quarter: 2007Q3

REPORT INFORMATION
  Report Type: 
  Country: None (occurrence: None)
  Receive Date: 20070821
  Receipt Date: 20070813
  Transmission Date: 20080115
  Serious: Yes (Hospitalization)
  Sender: FDA-Public Use
  Company Number: DE-ELI_LILLY_AND_COMPANY-DE200708003028

PATIENT
  Sex: Male

DRUGS (3)
  1. ZYPREXA [Suspect]
     Indication: PSYCHOTIC DISORDER
     Dosage: 15 MG, UNK
     Route: 048
  2. FLUANXOL [Concomitant]
     Dosage: 0.5 MG, UNK
  3. GLIANIMON [Concomitant]
     Dosage: 2 MG, UNK

REACTIONS (3)
  - ABASIA [None]
  - COMA [None]
  - MUSCLE SPASMS [None]
